FAERS Safety Report 8999480 (Version 1)
Quarter: 2013Q1

REPORT INFORMATION
  Report Type: Spontaneous
  Country: FR (occurrence: FR)
  Receive Date: 20130103
  Receipt Date: 20130103
  Transmission Date: 20140127
  Serious: Yes (Hospitalization)
  Sender: FDA-Public Use
  Company Number: FR-GLAXOSMITHKLINE-B0855219A

PATIENT
  Age: 87 Year
  Sex: Male

DRUGS (5)
  1. ARIXTRA [Suspect]
     Indication: THROMBOPHLEBITIS
     Dosage: 7.5MG PER DAY
     Route: 058
     Dates: start: 20110212, end: 20110216
  2. KARDEGIC [Concomitant]
     Indication: ARRHYTHMIA SUPRAVENTRICULAR
     Route: 048
  3. JOSIR [Concomitant]
     Route: 048
  4. EXFORGE [Concomitant]
     Indication: HYPERTENSION
  5. FLECAINE [Concomitant]
     Indication: HYPERTENSION

REACTIONS (1)
  - Haematuria [Recovered/Resolved]
